FAERS Safety Report 6272063-2 (Version None)
Quarter: 2009Q3

REPORT INFORMATION
  Report Type: 
  Country: None (occurrence: None)
  Receive Date: 20090717
  Receipt Date: 20090707
  Transmission Date: 20100115
  Serious: Yes (Hospitalization)
  Sender: FDA-Public Use
  Company Number: A0797193A

PATIENT
  Age: 62 Year
  Sex: Male

DRUGS (1)
  1. AVANDIA [Suspect]
     Dates: start: 20000327, end: 20060803

REACTIONS (3)
  - CORONARY ARTERY BYPASS [None]
  - HEART INJURY [None]
  - MYOCARDIAL INFARCTION [None]
